FAERS Safety Report 8559989-1 (Version None)
Quarter: 2012Q3

REPORT INFORMATION
  Report Type: 
  Country: None (occurrence: None)
  Receive Date: 20120802
  Receipt Date: 20120726
  Transmission Date: 20120928
  Serious: Yes (Hospitalization, Other)
  Sender: FDA-Public Use
  Company Number: US-PFIZER INC-2012106067

PATIENT
  Sex: Female

DRUGS (1)
  1. XALATAN [Suspect]
     Dosage: UNK

REACTIONS (7)
  - ARTHRITIS [None]
  - HAEMORRHAGE [None]
  - MALAISE [None]
  - FATIGUE [None]
  - NAUSEA [None]
  - ARTHRALGIA [None]
  - INTRAOCULAR PRESSURE INCREASED [None]
